FAERS Safety Report 13942505 (Version 1)
Quarter: 2017Q3

REPORT INFORMATION
  Report Type: Report from Study
  Country: US (occurrence: US)
  Receive Date: 20170907
  Receipt Date: 20170907
  Transmission Date: 20171127
  Serious: Yes (Hospitalization)
  Sender: FDA-Public Use
  Company Number: US-JNJFOC-20170904803

PATIENT
  Age: 20 Year
  Sex: Female
  Weight: 88.45 kg

DRUGS (1)
  1. REMICADE [Suspect]
     Active Substance: INFLIXIMAB
     Indication: INFLAMMATORY BOWEL DISEASE
     Route: 042
     Dates: start: 20120711

REACTIONS (1)
  - Abscess [Not Recovered/Not Resolved]

NARRATIVE: CASE EVENT DATE: 20170331
